FAERS Safety Report 10155391 (Version 1)
Quarter: 2014Q2

REPORT INFORMATION
  Report Type: Spontaneous
  Country: US (occurrence: None)
  Receive Date: 20140401
  Receipt Date: 20140401
  Transmission Date: 20141212
  Serious: Yes (Hospitalization)
  Sender: FDA-Public Use
  Company Number: PHEH2012US024241

PATIENT
  Age: 72 Year
  Sex: Male

DRUGS (1)
  1. TASIGNA (AMN107) CAPSULE [Suspect]
     Indication: NEOPLASM MALIGNANT
     Route: 048
     Dates: start: 20100816

REACTIONS (2)
  - Dyspnoea [None]
  - Chest pain [None]
